FAERS Safety Report 21773062 (Version 1)
Quarter: 2022Q4

REPORT INFORMATION
  Report Type: Spontaneous
  Country: US (occurrence: None)
  Receive Date: 20221221
  Receipt Date: 20221221
  Transmission Date: 20230112
  Serious: No
  Sender: FDA-Public Use
  Company Number: None

PATIENT

DRUGS (1)
  1. EPINEPHRINE [Suspect]
     Active Substance: EPINEPHRINE

REACTIONS (5)
  - Product selection error [None]
  - Accidental overdose [None]
  - Wrong technique in product usage process [None]
  - Product distribution issue [None]
  - Product use issue [None]
